FAERS Safety Report 18468341 (Version 1)
Quarter: 2020Q4

REPORT INFORMATION
  Report Type: Report from Study
  Country: None (occurrence: US)
  Receive Date: 20201105
  Receipt Date: 20201105
  Transmission Date: 20210114
  Serious: Yes (Hospitalization, Other)
  Sender: FDA-Public Use
  Company Number: US-ABBVIE-20K-163-3261957-00

PATIENT
  Age: 65 Year
  Sex: Female
  Weight: 69.46 kg

DRUGS (7)
  1. HUMIRA [Suspect]
     Active Substance: ADALIMUMAB
     Indication: RHEUMATOID ARTHRITIS
     Route: 058
     Dates: start: 20191221
  2. FLOVENT [Concomitant]
     Active Substance: FLUTICASONE PROPIONATE
     Indication: SARCOIDOSIS
  3. PROLIA [Concomitant]
     Active Substance: DENOSUMAB
     Indication: OSTEOPOROSIS
  4. ALBUTEROL. [Concomitant]
     Active Substance: ALBUTEROL
     Indication: SARCOIDOSIS
  5. HUMIRA [Suspect]
     Active Substance: ADALIMUMAB
     Route: 058
  6. HUMIRA [Suspect]
     Active Substance: ADALIMUMAB
     Indication: SPINAL OSTEOARTHRITIS
     Route: 058
  7. ALBUTEROL SULFATE HFA [Concomitant]
     Active Substance: ALBUTEROL SULFATE
     Indication: SARCOIDOSIS
     Dosage: INHALERS

REACTIONS (20)
  - Device issue [Unknown]
  - Influenza [Recovered/Resolved]
  - Arthropathy [Unknown]
  - Contusion [Not Recovered/Not Resolved]
  - Off label use [Not Recovered/Not Resolved]
  - Adverse drug reaction [Unknown]
  - Sitting disability [Unknown]
  - Concussion [Not Recovered/Not Resolved]
  - Needle issue [Unknown]
  - Hypoacusis [Unknown]
  - Loss of consciousness [Recovered/Resolved]
  - Thyroid disorder [Unknown]
  - Joint range of motion decreased [Unknown]
  - Sarcoidosis [Not Recovered/Not Resolved]
  - Decreased appetite [Unknown]
  - Decreased appetite [Recovered/Resolved]
  - Osteoporosis [Unknown]
  - Sleep disorder [Not Recovered/Not Resolved]
  - Pain [Unknown]
  - Fall [Recovered/Resolved]

NARRATIVE: CASE EVENT DATE: 20191221
